FAERS Safety Report 10071493 (Version 1)
Quarter: 2014Q2

REPORT INFORMATION
  Report Type: Report from Study
  Country: US (occurrence: US)
  Receive Date: 20140410
  Receipt Date: 20140410
  Transmission Date: 20141212
  Serious: Yes (Other)
  Sender: FDA-Public Use
  Company Number: US-ABBVIE-14P-163-1220500-00

PATIENT
  Age: 55 Year
  Sex: Female
  Weight: 67.19 kg

DRUGS (9)
  1. HUMIRA [Suspect]
     Indication: PSORIATIC ARTHROPATHY
     Route: 058
     Dates: start: 201203, end: 201206
  2. HUMIRA [Suspect]
     Route: 058
     Dates: start: 201207, end: 201304
  3. HUMIRA [Suspect]
     Route: 058
     Dates: start: 201305, end: 201310
  4. ARTHROTEC [Concomitant]
     Indication: PSORIATIC ARTHROPATHY
  5. LISINOPRIL [Concomitant]
     Indication: HYPERTENSION
  6. METOPROLOL [Concomitant]
     Indication: HEART RATE IRREGULAR
  7. OMARIS NASAL SPRAY [Concomitant]
     Indication: HYPERSENSITIVITY
  8. CRESTOR [Concomitant]
     Indication: BLOOD CHOLESTEROL INCREASED
  9. NORCO [Concomitant]
     Indication: PAIN

REACTIONS (3)
  - Surgical failure [Not Recovered/Not Resolved]
  - Postoperative wound infection [Recovered/Resolved]
  - Drug effect incomplete [Recovered/Resolved]
